FAERS Safety Report 7291812-8 (Version None)
Quarter: 2011Q1

REPORT INFORMATION
  Report Type: 
  Country: None (occurrence: None)
  Receive Date: 20110214
  Receipt Date: 20110204
  Transmission Date: 20110831
  Serious: Yes (Other)
  Sender: FDA-Public Use
  Company Number: PHHY2011JP07140

PATIENT
  Age: 82 Year
  Sex: Male

DRUGS (4)
  1. ALENDRONATE SODIUM [Suspect]
     Indication: MULTIPLE MYELOMA
     Dosage: UNK
  2. CHEMOTHERAPEUTICS NOS [Concomitant]
     Indication: MULTIPLE MYELOMA
     Dosage: UNK
  3. RADIATION THERAPY [Concomitant]
     Indication: MULTIPLE MYELOMA
  4. ZOMETA [Suspect]
     Indication: MULTIPLE MYELOMA
     Dosage: UNK

REACTIONS (1)
  - OSTEONECROSIS OF JAW [None]
